FAERS Safety Report 7704671 (Version 20)
Quarter: 2012Q4

REPORT INFORMATION
  Report Type: Report from Study
  Country: PH (occurrence: PH)
  Receive Date: 20101213
  Receipt Date: 20121122
  Transmission Date: 20130627
  Serious: Yes (Death, Life-Threatening, Hospitalization, Disabling, Other)
  Sender: FDA-Public Use
  Company Number: PH-ROCHE-740082

PATIENT
  Age: 68 Year
  Sex: Female
  Weight: 52 kg

DRUGS (10)
  1. TRASTUZUMAB [Suspect]
     Indication: BREAST CANCER
     Dosage: LAST DOSE PRIOR TO SAE : 26 OCT 2010, PERMANENTLY DISCONTINUED ON 16 NOV 2010
     Route: 042
     Dates: start: 20101026, end: 20101116
  2. DOCETAXEL [Suspect]
     Indication: BREAST CANCER
     Dosage: Dose level:100 mg/m2; LAST DOSE PRIOR TO SAE 26 OCT 2010, PERMANENTLY DISCONTINUED ON 16 NOV 2010
     Route: 042
     Dates: start: 20101026, end: 20101116
  3. CIPROFLOXACIN [Concomitant]
     Route: 065
     Dates: start: 20101026, end: 20101102
  4. OMEPRAZOLE [Concomitant]
     Route: 065
     Dates: start: 20101104, end: 20101123
  5. FLUCONAZOLE [Concomitant]
     Route: 065
     Dates: start: 20101103, end: 20101109
  6. TINZAPARIN [Concomitant]
     Dosage: tdd 10000 units
     Route: 065
     Dates: start: 20101105, end: 20101106
  7. VITAMIN K [Concomitant]
     Route: 065
     Dates: start: 20101107, end: 20101116
  8. MUCOSTA [Concomitant]
     Route: 065
     Dates: start: 20101109, end: 20101111
  9. TRANEXAMIC ACID [Concomitant]
     Route: 065
     Dates: start: 20101114, end: 20101123
  10. PARACETAMOL [Concomitant]
     Route: 065
     Dates: start: 20101105, end: 20101122

REACTIONS (8)
  - Hepatic failure [Fatal]
  - Pneumonia [Not Recovered/Not Resolved]
  - Gastrointestinal ulcer [Not Recovered/Not Resolved]
  - Duodenal ulcer [Not Recovered/Not Resolved]
  - Neutrophil count decreased [Recovered/Resolved]
  - Neutropenia [Unknown]
  - Cardio-respiratory arrest [Unknown]
  - Pneumonia [Not Recovered/Not Resolved]
